FAERS Safety Report 22536374 (Version 1)
Quarter: 2023Q2

REPORT INFORMATION
  Report Type: Spontaneous
  Country: US (occurrence: US)
  Receive Date: 20230608
  Receipt Date: 20230608
  Transmission Date: 20230721
  Serious: No
  Sender: FDA-Public Use
  Company Number: US-TRIS PHARMA, INC.-23US010893

PATIENT

DRUGS (2)
  1. DYANAVEL XR [Suspect]
     Active Substance: AMPHETAMINE
     Indication: Attention deficit hyperactivity disorder
     Dosage: 1.2 MILLILITRE, QD
  2. DYANAVEL XR [Suspect]
     Active Substance: AMPHETAMINE
     Dosage: 1.5 MILLILITRE, QD

REACTIONS (2)
  - Anxiety [Unknown]
  - Therapeutic product effect incomplete [Unknown]
